FAERS Safety Report 6386753-4 (Version None)
Quarter: 2009Q4

REPORT INFORMATION
  Report Type: 
  Country: None (occurrence: None)
  Receive Date: 20091002
  Receipt Date: 20090929
  Transmission Date: 20100525
  Serious: Yes (Hospitalization)
  Sender: FDA-Public Use
  Company Number: A0809149A

PATIENT
  Age: 68 Year
  Sex: Female
  Weight: 106.8 kg

DRUGS (9)
  1. AVANDIA [Suspect]
     Indication: DIABETES MELLITUS
     Dosage: 4MG TWICE PER DAY
     Route: 048
     Dates: start: 20000101, end: 20071009
  2. LANTUS [Concomitant]
  3. ZETIA [Concomitant]
  4. LISINOPRIL [Concomitant]
  5. HYDROXYCHLOROQUINE [Concomitant]
  6. BONIVA [Concomitant]
  7. SINEMET [Concomitant]
  8. PREVACID [Concomitant]
  9. CRESTOR [Concomitant]

REACTIONS (12)
  - CARDIAC FAILURE CONGESTIVE [None]
  - CORONARY ARTERY BYPASS [None]
  - CORONARY ARTERY DISEASE [None]
  - FATIGUE [None]
  - LEFT ATRIAL DILATATION [None]
  - MITRAL VALVE INCOMPETENCE [None]
  - MYOCARDIAL ISCHAEMIA [None]
  - PLEURAL EFFUSION [None]
  - PULMONARY HYPERTENSION [None]
  - SCAPULA FRACTURE [None]
  - TRICUSPID VALVE INCOMPETENCE [None]
  - WEIGHT DECREASED [None]
